FAERS Safety Report 9089828 (Version 1)
Quarter: 2013Q1

REPORT INFORMATION
  Report Type: Report from Study
  Country: US (occurrence: US)
  Receive Date: 20130201
  Receipt Date: 20130201
  Transmission Date: 20140127
  Serious: No
  Sender: FDA-Public Use
  Company Number: US-ABBOTT-12P-163-1019734-00

PATIENT
  Age: 70 Year
  Sex: Female

DRUGS (23)
  1. HUMIRA [Suspect]
     Indication: PSORIATIC ARTHROPATHY
     Route: 058
     Dates: start: 201208
  2. NORVASC [Concomitant]
     Indication: CARDIAC DISORDER
     Dosage: 5MG DAILY
  3. POTASSIUM [Concomitant]
     Indication: PRODUCT USED FOR UNKNOWN INDICATION
     Dosage: 10 MG DAILY
  4. METROZINE [Concomitant]
     Indication: PRODUCT USED FOR UNKNOWN INDICATION
  5. LOMOTIL [Concomitant]
     Indication: PRODUCT USED FOR UNKNOWN INDICATION
     Dosage: UP TO 4 TIMES PER DAY
  6. INDERAL [Concomitant]
     Indication: HYPERTENSION
  7. ZOCOR [Concomitant]
     Indication: PRODUCT USED FOR UNKNOWN INDICATION
     Dosage: 20 MG DAILY
  8. ARICEPT [Concomitant]
     Indication: DEMENTIA ALZHEIMER^S TYPE
     Dosage: 5MG IN AM AND 10 MG IN PM
  9. VYVANSE [Concomitant]
     Indication: NARCOLEPSY
     Dosage: 70 MG DAILY
  10. HALCION [Concomitant]
     Indication: SLEEP DISORDER THERAPY
     Dosage: EVERY NIGHT
  11. XANAX [Concomitant]
     Indication: PRODUCT USED FOR UNKNOWN INDICATION
     Dosage: EVERY NIGHT AS NEEDED
  12. DEMEROL [Concomitant]
     Indication: DIARRHOEA
     Dosage: 25 MG AT NOON AND 50 MG AT NIGHT
  13. DEMEROL [Concomitant]
     Indication: PAIN
  14. PHENERGAN [Concomitant]
     Indication: NAUSEA
     Dosage: 25 MG DAILY
  15. ALIGN [Concomitant]
     Indication: NAUSEA
  16. EPINEPHRINE [Concomitant]
     Indication: HYPERSENSITIVITY
  17. EPINEPHRINE [Concomitant]
     Indication: ARTHROPOD BITE
  18. LASIX [Concomitant]
     Indication: OEDEMA PERIPHERAL
     Dosage: 40MG/80MG AS NEEDED
  19. VITAMIN B 12 [Concomitant]
     Indication: SUPPLEMENTATION THERAPY
     Route: 050
  20. ZINC [Concomitant]
     Indication: SUPPLEMENTATION THERAPY
  21. FOLIC ACID [Concomitant]
     Indication: SUPPLEMENTATION THERAPY
  22. CALCIUM [Concomitant]
     Indication: SUPPLEMENTATION THERAPY
  23. MAGNESIUM [Concomitant]
     Indication: SUPPLEMENTATION THERAPY

REACTIONS (3)
  - Influenza like illness [Recovered/Resolved]
  - Pain [Recovered/Resolved]
  - Feeling hot [Recovered/Resolved]
